FAERS Safety Report 7595539-4 (Version None)
Quarter: 2011Q3

REPORT INFORMATION
  Report Type: 
  Country: None (occurrence: None)
  Receive Date: 20110707
  Receipt Date: 20110615
  Transmission Date: 20111222
  Serious: Yes (Hospitalization)
  Sender: FDA-Public Use
  Company Number: US-GLAXOSMITHKLINE-A0869757A

PATIENT
  Age: 53 Year
  Sex: Female
  Weight: 95.9 kg

DRUGS (6)
  1. AVANDIA [Suspect]
     Indication: DIABETES MELLITUS
     Dosage: 8MG PER DAY
     Route: 048
     Dates: start: 20030206, end: 20060608
  2. LOPRESSOR [Concomitant]
  3. AMARYL [Concomitant]
  4. PREVACID [Concomitant]
  5. SYNTHROID [Concomitant]
  6. XANAX [Concomitant]

REACTIONS (1)
  - MYOCARDIAL INFARCTION [None]
